FAERS Safety Report 18708539 (Version 1)
Quarter: 2021Q1

REPORT INFORMATION
  Report Type: Spontaneous
  Country: NL (occurrence: NL)
  Receive Date: 20210106
  Receipt Date: 20210106
  Transmission Date: 20210419
  Serious: Yes (Hospitalization, Disabling, Other)
  Sender: FDA-Public Use
  Company Number: NL-SA-2021SA001424

PATIENT

DRUGS (3)
  1. OXALIPLATIN. [Suspect]
     Active Substance: OXALIPLATIN
     Indication: COLON CANCER
     Dosage: 813 MG/M2, QCY
     Route: 041
  2. BEVACIZUMAB. [Concomitant]
     Active Substance: BEVACIZUMAB
     Indication: COLON CANCER
     Dosage: UNK UNK, QCY
     Route: 041
  3. CAPECITABINE. [Concomitant]
     Active Substance: CAPECITABINE
     Indication: COLON CANCER
     Dosage: UNK UNK, QCY
     Route: 041

REACTIONS (13)
  - Paraesthesia [Not Recovered/Not Resolved]
  - Fatigue [Recovering/Resolving]
  - Loss of personal independence in daily activities [Not Recovered/Not Resolved]
  - Nausea [Unknown]
  - Asthenia [Recovering/Resolving]
  - Malaise [Unknown]
  - Neuropathy peripheral [Not Recovered/Not Resolved]
  - Neurotoxicity [Not Recovered/Not Resolved]
  - Tracheomalacia [Not Recovered/Not Resolved]
  - Decreased appetite [Unknown]
  - Dysaesthesia pharynx [Recovered/Resolved]
  - Impaired quality of life [Not Recovered/Not Resolved]
  - Pain in extremity [Not Recovered/Not Resolved]
